FAERS Safety Report 6305168-8 (Version None)
Quarter: 2009Q3

REPORT INFORMATION
  Report Type: 
  Country: None (occurrence: None)
  Receive Date: 20090805
  Receipt Date: 20081016
  Transmission Date: 20100115
  Serious: Yes (Other)
  Sender: FDA-Public Use
  Company Number: DSU-2008-01701

PATIENT
  Age: 52 Year
  Sex: Male

DRUGS (2)
  1. BENICAR HCT [Suspect]
     Indication: DRUG USE FOR UNKNOWN INDICATION
     Dosage: PER ORAL
     Route: 048
     Dates: end: 20081001
  2. WELCHOL [Concomitant]

REACTIONS (1)
  - RHABDOMYOLYSIS [None]
